FAERS Safety Report 15640316 (Version 1)
Quarter: 2018Q4

REPORT INFORMATION
  Report Type: Spontaneous
  Country: US (occurrence: US)
  Receive Date: 20181120
  Receipt Date: 20181120
  Transmission Date: 20190205
  Serious: Yes (Other)
  Sender: FDA-Public Use
  Company Number: PHHY2018US157325

PATIENT
  Age: 13 Year
  Sex: Male

DRUGS (1)
  1. PREDNISONE. [Suspect]
     Active Substance: PREDNISONE
     Indication: HAEMOLYTIC ANAEMIA
     Route: 065

REACTIONS (6)
  - Autoimmune haemolytic anaemia [Unknown]
  - Epstein-Barr viraemia [Unknown]
  - Bone marrow failure [Unknown]
  - Sepsis [Unknown]
  - Splenomegaly [Unknown]
  - Product use in unapproved indication [Unknown]
